FAERS Safety Report 4321878-6 (Version None)
Quarter: 2004Q1

REPORT INFORMATION
  Report Type: 
  Country: None (occurrence: None)
  Receive Date: 20040322
  Receipt Date: 20031208
  Transmission Date: 20041129
  Serious: No
  Sender: FDA-Public Use
  Company Number: A-US2003-03958

PATIENT
  Age: 62 Year
  Sex: Male

DRUGS (10)
  1. TRACLEER [Suspect]
     Indication: PULMONARY HYPERTENSION
     Dosage: SEE IMAGE
     Route: 048
     Dates: start: 20020701, end: 20020801
  2. TRACLEER [Suspect]
     Indication: PULMONARY HYPERTENSION
     Dosage: SEE IMAGE
     Route: 048
     Dates: start: 20020801, end: 20031203
  3. TRACLEER [Suspect]
     Indication: PULMONARY HYPERTENSION
     Dosage: SEE IMAGE
     Route: 048
     Dates: start: 20031203
  4. COLCHICINE (COLCHICINE) [Concomitant]
  5. GLYBURIDE [Concomitant]
  6. COZAAR [Concomitant]
  7. LASIX [Concomitant]
  8. COUMADIN [Concomitant]
  9. ALDACTONE [Concomitant]
  10. LISINOPRIL [Concomitant]

REACTIONS (1)
  - HAEMOGLOBIN DECREASED [None]
